FAERS Safety Report 10509767 (Version 1)
Quarter: 2014Q4

REPORT INFORMATION
  Report Type: Spontaneous
  Country: US (occurrence: US)
  Receive Date: 20141010
  Receipt Date: 20141010
  Transmission Date: 20150528
  Serious: No
  Sender: FDA-Public Use
  Company Number: US-BIOGENIDEC-2014BI102876

PATIENT
  Age: 48 Year
  Sex: Female

DRUGS (19)
  1. GINGKO BILOBA [Concomitant]
  2. TECFIDERA [Suspect]
     Active Substance: DIMETHYL FUMARATE
     Indication: MULTIPLE SCLEROSIS
     Route: 048
     Dates: start: 20131122
  3. ABILIFY [Concomitant]
     Active Substance: ARIPIPRAZOLE
  4. FENTANYL. [Concomitant]
     Active Substance: FENTANYL
  5. COLACE [Concomitant]
     Active Substance: DOCUSATE SODIUM
  6. AMBIEN [Concomitant]
     Active Substance: ZOLPIDEM TARTRATE
  7. MAGNESIUM GLUCONATE [Concomitant]
     Active Substance: MAGNESIUM GLUCONATE
  8. GINSENG [Concomitant]
  9. ATIVAN [Concomitant]
     Active Substance: LORAZEPAM
  10. ZANAFLEX [Concomitant]
     Active Substance: TIZANIDINE HYDROCHLORIDE
  11. CLARITIN [Concomitant]
     Active Substance: LORATADINE
  12. CALCIUM + D + K [Concomitant]
  13. PREMARIN [Concomitant]
     Active Substance: ESTROGENS, CONJUGATED
  14. PROCHLORPERAZINE MALEATE. [Concomitant]
     Active Substance: PROCHLORPERAZINE MALEATE
  15. CHILDREN^S ASPIRIN [Concomitant]
     Active Substance: ASPIRIN
  16. OXYCODONE HCL [Concomitant]
     Active Substance: OXYCODONE HYDROCHLORIDE
  17. PROVIGIL [Concomitant]
     Active Substance: MODAFINIL
  18. ZOLOFT [Concomitant]
     Active Substance: SERTRALINE HYDROCHLORIDE
  19. PRILOSEC [Concomitant]
     Active Substance: OMEPRAZOLE MAGNESIUM

REACTIONS (2)
  - Gait disturbance [Unknown]
  - Fatigue [Unknown]

NARRATIVE: CASE EVENT DATE: 201408
